FAERS Safety Report 9279048 (Version 1)
Quarter: 2012Q4

REPORT INFORMATION
  Report Type: Spontaneous
  Country: DE (occurrence: None)
  Receive Date: 20121127
  Receipt Date: 20121127
  Transmission Date: 20130627
  Serious: Yes (Other)
  Sender: FDA-Public Use
  Company Number: 2012033878

PATIENT
  Age: 72 Year
  Sex: Female

DRUGS (1)
  1. PRIVIGEN (IMMUNE GLOBULIN INTRAVENOUS (HUMAN) 10% LIQUID) [Suspect]
     Indication: IMMUNODEFICIENCY SECONDARY TO NEOPLASM
     Dosage: (not otherwise specified)
     Route: 042

REACTIONS (3)
  - Anaphylactic reaction [None]
  - Lung disorder [None]
  - Bronchospasm [None]
